FAERS Safety Report 9563392 (Version 2)
Quarter: 2013Q3

REPORT INFORMATION
  Report Type: Spontaneous
  Country: JP (occurrence: JP)
  Receive Date: 20130927
  Receipt Date: 20130927
  Transmission Date: 20140515
  Serious: Yes (Hospitalization, Other)
  Sender: FDA-Public Use
  Company Number: JP-ROCHE-1270278

PATIENT
  Age: 76 Year
  Sex: Female
  Weight: 47 kg

DRUGS (7)
  1. ACTEMRA [Suspect]
     Indication: RHEUMATOID ARTHRITIS
     Route: 058
     Dates: start: 20130626, end: 20130710
  2. PREDNISOLONE [Concomitant]
     Indication: RHEUMATOID ARTHRITIS
     Route: 065
     Dates: start: 20030421
  3. MICAMLO [Concomitant]
     Route: 048
     Dates: start: 20130117
  4. REBAMIPIDE [Concomitant]
     Indication: PROPHYLAXIS
     Route: 048
     Dates: start: 20030224
  5. OMEPRAZOLE [Concomitant]
     Indication: PROPHYLAXIS
     Route: 048
     Dates: start: 20030224
  6. GLAKAY [Concomitant]
     Route: 048
     Dates: start: 20130604
  7. ALENDRONATE SODIUM [Concomitant]
     Route: 048
     Dates: start: 20061205

REACTIONS (6)
  - Diverticular perforation [Recovering/Resolving]
  - Retroperitoneal abscess [Recovering/Resolving]
  - Ureteric stenosis [Recovering/Resolving]
  - Hydronephrosis [Recovering/Resolving]
  - Cholelithiasis [Unknown]
  - Diverticulitis [Recovering/Resolving]
